FAERS Safety Report 19222827 (Version 1)
Quarter: 2021Q2

REPORT INFORMATION
  Report Type: Spontaneous
  Country: UA (occurrence: UA)
  Receive Date: 20210505
  Receipt Date: 20210505
  Transmission Date: 20210717
  Serious: Yes (Hospitalization)
  Sender: FDA-Public Use
  Company Number: UA-BAYER-2021-131658

PATIENT
  Age: 19 Year

DRUGS (10)
  1. NIMESULIDE [Suspect]
     Active Substance: NIMESULIDE
     Indication: RHINITIS ALLERGIC
  2. AMOXICILLIN. [Suspect]
     Active Substance: AMOXICILLIN
     Indication: RHINITIS ALLERGIC
  3. XYLOMETAZOLINE [Suspect]
     Active Substance: XYLOMETAZOLINE
     Indication: RHINITIS ALLERGIC
  4. NIMESULIDE [Suspect]
     Active Substance: NIMESULIDE
     Indication: SINUSITIS BACTERIAL
  5. CEFIXIME. [Suspect]
     Active Substance: CEFIXIME
     Indication: RHINITIS ALLERGIC
  6. CLARITINE 10 MG [Suspect]
     Active Substance: LORATADINE
     Indication: RHINITIS ALLERGIC
  7. AMOXICILLIN. [Suspect]
     Active Substance: AMOXICILLIN
     Indication: SINUSITIS BACTERIAL
  8. XYLOMETAZOLINE [Suspect]
     Active Substance: XYLOMETAZOLINE
     Indication: SINUSITIS BACTERIAL
  9. CLARITINE 10 MG [Suspect]
     Active Substance: LORATADINE
     Indication: SINUSITIS BACTERIAL
     Dosage: 1 DF
  10. CEFIXIME. [Suspect]
     Active Substance: CEFIXIME
     Indication: SINUSITIS BACTERIAL

REACTIONS (5)
  - Drug ineffective [None]
  - Headache [None]
  - Facial pain [None]
  - Ear congestion [None]
  - Nasal congestion [None]
